FAERS Safety Report 18584275 (Version 4)
Quarter: 2021Q1

REPORT INFORMATION
  Report Type: Spontaneous
  Country: SE (occurrence: SE)
  Receive Date: 20201207
  Receipt Date: 20210204
  Transmission Date: 20210419
  Serious: Yes (Hospitalization)
  Sender: FDA-Public Use
  Company Number: SE-JNJFOC-20201153540

PATIENT
  Age: 6 Decade
  Sex: Male

DRUGS (17)
  1. HUMALOG [Concomitant]
     Active Substance: INSULIN LISPRO
     Dosage: 100 UNITS/ML 6 UNITS X3.
     Route: 065
  2. TRESIBA [Concomitant]
     Active Substance: INSULIN DEGLUDEC
     Dosage: 100 UNITS/ML 20 UNITS
     Route: 065
  3. XEPLION [Suspect]
     Active Substance: PALIPERIDONE PALMITATE
     Indication: SCHIZOPHRENIA
     Route: 030
     Dates: start: 2017
  4. XEPLION [Suspect]
     Active Substance: PALIPERIDONE PALMITATE
  5. RISPERIDONE. [Concomitant]
     Active Substance: RISPERIDONE
     Dosage: 0.5 MGX2
     Route: 065
     Dates: start: 20210118
  6. BISOPROLOL [Concomitant]
     Active Substance: BISOPROLOL
     Dosage: 5MG X2
     Route: 065
  7. SODIUM BICARBONATE. [Concomitant]
     Active Substance: SODIUM BICARBONATE
     Dosage: 1 GMX2
     Route: 065
  8. FOLACIN [FOLIC ACID] [Concomitant]
     Active Substance: FOLIC ACID
     Dosage: 1MGX1
     Route: 065
  9. FURIX [FUROSEMIDE] [Concomitant]
     Active Substance: FUROSEMIDE
     Dosage: 40MGX1
     Route: 065
  10. CANDESARTAN. [Concomitant]
     Active Substance: CANDESARTAN
     Dosage: 4MG X1
  11. SORBILAX [Concomitant]
     Dosage: 5MG IF NEEDED
     Route: 065
  12. ZYPREXA [Concomitant]
     Active Substance: OLANZAPINE
     Dosage: 2,5 MG IF NEEDED
     Route: 065
  13. DIVISUN [Concomitant]
     Active Substance: CHOLECALCIFEROL
     Dosage: 2000 IU
     Route: 065
  14. SIFROL [Concomitant]
     Active Substance: PRAMIPEXOLE
     Dosage: 0,18MG IF NEEDED.
     Route: 065
  15. XEPLION [Suspect]
     Active Substance: PALIPERIDONE PALMITATE
  16. DOXAZOSIN [Concomitant]
     Active Substance: DOXAZOSIN MESYLATE
     Dosage: 4MGX1
     Route: 065
  17. AMLODIPINE [Concomitant]
     Active Substance: AMLODIPINE BESYLATE
     Dosage: 10MG X1
     Route: 065

REACTIONS (2)
  - Renal failure [Unknown]
  - Urinary retention [Unknown]

NARRATIVE: CASE EVENT DATE: 202011
